FAERS Safety Report 4646638-8 (Version None)
Quarter: 2005Q2

REPORT INFORMATION
  Report Type: 
  Country: None (occurrence: None)
  Receive Date: 20050426
  Receipt Date: 20050411
  Transmission Date: 20051028
  Serious: Yes (Death)
  Sender: FDA-Public Use
  Company Number: 2005S1002223

PATIENT
  Age: 48 Year
  Sex: Female

DRUGS (2)
  1. CLOZAPINE [Suspect]
     Indication: SCHIZOPHRENIA
     Dosage: 75 MG; QD; PO
     Route: 048
     Dates: start: 20040901, end: 20050201
  2. CLOZAPINE [Suspect]
     Dosage: 500 MG; HS; PO
     Route: 048
     Dates: start: 20040301, end: 20050201

REACTIONS (1)
  - LUNG NEOPLASM MALIGNANT [None]
